FAERS Safety Report 8771807 (Version 1)
Quarter: 2012Q4

REPORT INFORMATION
  Report Type: 
  Country: CA (occurrence: CA)
  Receive Date: 20120906
  Receipt Date: 20120906
  Transmission Date: 20130627
  Serious: No
  Sender: FDA-Public Use
  Company Number: CA-009507513-1209CAN001138

PATIENT

DRUGS (2)
  1. SAPHRIS [Suspect]
     Indication: BIPOLAR DISORDER
     Dosage: 5 mg, bid
     Route: 060
     Dates: start: 2012
  2. SAPHRIS [Suspect]
     Dosage: 5 mg, tid
     Dates: start: 2012

REACTIONS (1)
  - Swollen tongue [Recovered/Resolved]
